FAERS Safety Report 23234624 (Version 1)
Quarter: 2023Q4

REPORT INFORMATION
  Report Type: Report from Study
  Country: US (occurrence: US)
  Receive Date: 20231128
  Receipt Date: 20231128
  Transmission Date: 20240109
  Serious: Yes (Other)
  Sender: FDA-Public Use
  Company Number: US-ABBVIE-5510614

PATIENT
  Age: 58 Year
  Sex: Female

DRUGS (1)
  1. HUMIRA [Suspect]
     Active Substance: ADALIMUMAB
     Indication: Hidradenitis
     Dosage: FORM STRENGTH: 40MG CF
     Route: 058
     Dates: start: 20230804, end: 20231103

REACTIONS (3)
  - Acrochordon [Unknown]
  - Skin discolouration [Unknown]
  - Scab [Unknown]

NARRATIVE: CASE EVENT DATE: 20231001
